FAERS Safety Report 7893247-3 (Version None)
Quarter: 2011Q4

REPORT INFORMATION
  Report Type: 
  Country: None (occurrence: None)
  Receive Date: 20111104
  Receipt Date: 20111031
  Transmission Date: 20120403
  Serious: Yes (Hospitalization)
  Sender: FDA-Public Use
  Company Number: PHHY2011NL96393

PATIENT
  Sex: Male

DRUGS (10)
  1. ZOMETA [Suspect]
     Dosage: 4 MG/ 5 ML INFUSION FLUID ONCE PER 42 DAYS
     Dates: start: 20110919
  2. FUROSEMIDE [Concomitant]
     Dosage: 1X20
  3. HYDROCHLOROTHIAZIDE [Concomitant]
     Dosage: 1 X 25
  4. ZOMETA [Suspect]
     Dosage: 4 MG/ 5 ML INFUSION FLUID ONCE PER 42 DAYS
     Dates: start: 20111031
  5. PREDNISONE [Concomitant]
     Dosage: 2 X 5 MG
  6. METFORMIN HCL [Concomitant]
     Dosage: 2X1000 MG
  7. GLYBURIDE [Concomitant]
  8. ZOMETA [Suspect]
     Indication: PROSTATE CANCER METASTATIC
     Dosage: 4 MG/ 5 ML INFUSION FLUID ONCE PER 42 DAYS
     Dates: start: 20100121
  9. ZOLADEX [Concomitant]
  10. PCM-CODEIN [Concomitant]
     Dosage: 1- 4 X 500/10 PRN

REACTIONS (1)
  - CHEST DISCOMFORT [None]
